FAERS Safety Report 13973086 (Version 2)
Quarter: 2017Q4

REPORT INFORMATION
  Report Type: Spontaneous
  Country: US (occurrence: US)
  Receive Date: 20170915
  Receipt Date: 20171120
  Transmission Date: 20180321
  Serious: No
  Sender: FDA-Public Use
  Company Number: US-009507513-1709USA007101

PATIENT
  Age: 18 Year
  Sex: Female
  Weight: 56.69 kg

DRUGS (1)
  1. NEXPLANON [Suspect]
     Active Substance: ETONOGESTREL
     Dosage: 1 IMPLANT, EVERY 3 YEARS; LEFT ARM
     Route: 059
     Dates: start: 20161116

REACTIONS (2)
  - Migration of implanted drug [Not Recovered/Not Resolved]
  - Implant site bruising [Unknown]

NARRATIVE: CASE EVENT DATE: 20170911
